FAERS Safety Report 5454639-5 (Version None)
Quarter: 2007Q3

REPORT INFORMATION
  Report Type: 
  Country: None (occurrence: None)
  Receive Date: 20070917
  Receipt Date: 20060717
  Transmission Date: 20080115
  Serious: No
  Sender: FDA-Public Use
  Company Number: US-ASTRAZENECA-2006UW14621

PATIENT
  Age: 17 Year
  Sex: Female

DRUGS (8)
  1. SEROQUEL [Suspect]
     Route: 048
     Dates: end: 20060101
  2. SEROQUEL [Suspect]
     Route: 048
     Dates: start: 20060101
  3. PROZAC [Concomitant]
  4. LEXAPRO [Concomitant]
  5. LODINE [Concomitant]
  6. LOMOTEL [Concomitant]
  7. REGLAN [Concomitant]
  8. SYMBYAX [Concomitant]
     Dosage: 12/50

REACTIONS (2)
  - GALLBLADDER DISORDER [None]
  - WEIGHT INCREASED [None]
